FAERS Safety Report 7757569-9 (Version None)
Quarter: 2011Q3

REPORT INFORMATION
  Report Type: 
  Country: None (occurrence: None)
  Receive Date: 20110916
  Receipt Date: 20110914
  Transmission Date: 20111222
  Serious: Yes (Life-Threatening, Hospitalization)
  Sender: FDA-Public Use
  Company Number: PHFR2011GB05364

PATIENT
  Age: 24 Year
  Sex: Female
  Weight: 52 kg

DRUGS (12)
  1. ALBUTEROL [Concomitant]
     Dosage: 200 UG, PRN
  2. XOLAIR [Suspect]
     Indication: ASTHMA
     Dosage: 300 MG, UNK
     Route: 058
     Dates: start: 20110301, end: 20110830
  3. VITAMIN D [Concomitant]
     Indication: VITAMIN SUPPLEMENTATION
     Route: 065
  4. NASONEX [Concomitant]
     Dosage: ONE A DAY
  5. OMEPRAZOLE [Concomitant]
     Dosage: ONE A DAY
  6. ORAL CONTRACEPTIVE NOS [Concomitant]
     Route: 048
  7. RANITIDINE [Concomitant]
     Dosage: ONE A DAY
  8. SERETIDE [Concomitant]
     Dosage: 2 DF, BID
  9. SPIRIVA [Concomitant]
     Dosage: 18 UG, QD
  10. AMINOPHYLLIN TAB [Suspect]
     Indication: ASTHMA
     Route: 048
     Dates: start: 20110827
  11. FEXOFENADINE HCL [Concomitant]
     Dosage: ONE A DAY
     Route: 065
  12. ALVESCO [Concomitant]
     Dosage: 2 DF, BID

REACTIONS (2)
  - TOXICITY TO VARIOUS AGENTS [None]
  - DEPRESSION [None]
